FAERS Safety Report 15599925 (Version 1)
Quarter: 2018Q4

REPORT INFORMATION
  Report Type: Spontaneous
  Country: CN (occurrence: CN)
  Receive Date: 20181108
  Receipt Date: 20181108
  Transmission Date: 20190205
  Serious: Yes (Life-Threatening, Hospitalization)
  Sender: FDA-Public Use
  Company Number: CN-BAXTER-2018BAX027178

PATIENT
  Age: 28 Year
  Sex: Male
  Weight: 57 kg

DRUGS (2)
  1. CYTARABINE HYDROCHLORIDE [Suspect]
     Active Substance: CYTARABINE HYDROCHLORIDE
     Indication: CHEMOTHERAPY
     Route: 041
     Dates: start: 20180621, end: 20180627
  2. 0.9% SODIUM CHLORIDE INJECTION [Suspect]
     Active Substance: SODIUM CHLORIDE
     Indication: MEDICATION DILUTION
     Dosage: CYTARABINE HYDROCHLORIDE FOR INJECTION 0.1G + 0.9% NS 40ML QD FOR CHEMOTHERAPY WAS PERFORMED
     Route: 041
     Dates: start: 20180621, end: 20180627

REACTIONS (4)
  - Asthenia [Recovering/Resolving]
  - Bone marrow failure [Recovering/Resolving]
  - Fatigue [Unknown]
  - Dizziness [Recovering/Resolving]

NARRATIVE: CASE EVENT DATE: 20180624
